FAERS Safety Report 4324835-9 (Version None)
Quarter: 2004Q1

REPORT INFORMATION
  Report Type: 
  Country: None (occurrence: None)
  Receive Date: 20040326
  Receipt Date: 20040317
  Transmission Date: 20041129
  Serious: Yes (Life-Threatening)
  Sender: FDA-Public Use
  Company Number: FR-BRISTOL-MYERS SQUIBB COMPANY-12537197

PATIENT
  Age: 64 Year
  Sex: Female

DRUGS (2)
  1. TAXOL [Suspect]
     Indication: OVARIAN EPITHELIAL CANCER
     Dosage: THERAPY DATES: 14-JAN-2004 TO 04-FEB-2004
     Route: 042
     Dates: start: 20040204, end: 20040204
  2. CARBOPLATIN [Suspect]
     Indication: OVARIAN EPITHELIAL CANCER
     Dosage: THERAPY DATES: 14-JAN-2004 TO 04-FEB-2004
     Route: 042
     Dates: start: 20040204, end: 20040204

REACTIONS (5)
  - ARTERIOSPASM CORONARY [None]
  - BLOOD PRESSURE DECREASED [None]
  - ELECTROCARDIOGRAM ST SEGMENT ELEVATION [None]
  - PARAESTHESIA [None]
  - SHOCK [None]
